FAERS Safety Report 5390040-0 (Version None)
Quarter: 2007Q3

REPORT INFORMATION
  Report Type: 
  Country: None (occurrence: None)
  Receive Date: 20070713
  Receipt Date: 20070703
  Transmission Date: 20080115
  Serious: Yes (Other)
  Sender: FDA-Public Use
  Company Number: 2007-02291

PATIENT
  Age: 1 Year

DRUGS (1)
  1. VELCADE [Suspect]
     Indication: LEUKAEMIA PLASMACYTIC

REACTIONS (2)
  - AUTOLOGOUS BONE MARROW TRANSPLANTATION THERAPY [None]
  - BONE MARROW FAILURE [None]
